FAERS Safety Report 11045677 (Version 1)
Quarter: 2015Q2

REPORT INFORMATION
  Report Type: Spontaneous
  Country: JP (occurrence: JP)
  Receive Date: 20150417
  Receipt Date: 20150417
  Transmission Date: 20150821
  Serious: Yes (Hospitalization)
  Sender: FDA-Public Use
  Company Number: JP-MYLANLABS-2015M1012774

PATIENT

DRUGS (1)
  1. METHOTREXATE [Suspect]
     Active Substance: METHOTREXATE
     Route: 037

REACTIONS (2)
  - Encephalomyelitis [Not Recovered/Not Resolved]
  - Quadriplegia [Not Recovered/Not Resolved]
